FAERS Safety Report 15500708 (Version 3)
Quarter: 2019Q4

REPORT INFORMATION
  Report Type: Report from Study
  Country: FR (occurrence: FR)
  Receive Date: 20181015
  Receipt Date: 20191203
  Transmission Date: 20200122
  Serious: Yes (Death, Other)
  Sender: FDA-Public Use
  Company Number: FR-CELGENEUS-FRA-20180903102

PATIENT
  Age: 68 Year
  Sex: Female
  Weight: 47 kg

DRUGS (5)
  1. OMEPRAZOLE. [Concomitant]
     Active Substance: OMEPRAZOLE
     Indication: PROPHYLAXIS
     Dosage: 20 MILLIGRAM
     Route: 065
     Dates: start: 20170427
  2. VERSATIS [Concomitant]
     Active Substance: LIDOCAINE
     Indication: MUSCLE INJURY
     Dosage: 1 DOSAGE FORMS
     Route: 065
     Dates: start: 201702
  3. AZACITIDINE. [Suspect]
     Active Substance: AZACITIDINE
     Indication: MYELODYSPLASTIC SYNDROME
     Route: 041
     Dates: start: 20170724, end: 20180116
  4. KETOPROFENE [Concomitant]
     Active Substance: KETOPROFEN
     Indication: MUSCLE INJURY
     Dosage: 100 MILLIGRAM
     Route: 065
     Dates: start: 201702
  5. REVLIMID [Suspect]
     Active Substance: LENALIDOMIDE
     Indication: MYELODYSPLASTIC SYNDROME
     Route: 048
     Dates: start: 20170104, end: 20170626

REACTIONS (1)
  - Acute myeloid leukaemia [Fatal]

NARRATIVE: CASE EVENT DATE: 20180815
